FAERS Safety Report 16656601 (Version 1)
Quarter: 2019Q3

REPORT INFORMATION
  Report Type: Spontaneous
  Country: US (occurrence: US)
  Receive Date: 20190618
  Receipt Date: 20190618
  Transmission Date: 20191004
  Serious: No
  Sender: FDA-Public Use
  Company Number: None

PATIENT
  Age: 64 Year
  Sex: Female

DRUGS (1)
  1. VERZENIO [Suspect]
     Active Substance: ABEMACICLIB
     Dates: start: 20190606

REACTIONS (6)
  - Heart rate increased [None]
  - Dehydration [None]
  - Diarrhoea [None]
  - Dizziness [None]
  - Blood potassium decreased [None]
  - Hypotension [None]

NARRATIVE: CASE EVENT DATE: 20190613
